FAERS Safety Report 4654344-9 (Version None)
Quarter: 2005Q2

REPORT INFORMATION
  Report Type: 
  Country: None (occurrence: None)
  Receive Date: 20050404
  Receipt Date: 20041112
  Transmission Date: 20051028
  Serious: No
  Sender: FDA-Public Use
  Company Number: USA041081641

PATIENT
  Age: 80 Year
  Sex: Female
  Weight: 68 kg

DRUGS (6)
  1. CYMBALTA [Suspect]
     Indication: DEPRESSION
     Dosage: 30 MG
     Dates: start: 20041018
  2. ANTIBIOTIC [Concomitant]
  3. XANAX(ALPRAZOLAM DUM) [Concomitant]
  4. NORVASC [Concomitant]
  5. RANITIDINE [Concomitant]
  6. VITAMINS [Concomitant]

REACTIONS (4)
  - ANXIETY [None]
  - HYPERTENSION [None]
  - INITIAL INSOMNIA [None]
  - INSOMNIA [None]
